FAERS Safety Report 6329975-0 (Version None)
Quarter: 2009Q3

REPORT INFORMATION
  Report Type: 
  Country: None (occurrence: None)
  Receive Date: 20090825
  Receipt Date: 20090819
  Transmission Date: 20100115
  Serious: Yes (Disabling)
  Sender: FDA-Public Use
  Company Number: 2009SP021228

PATIENT
  Age: 49 Year
  Sex: Female
  Weight: 75 kg

DRUGS (12)
  1. MIRTAZAPINE [Suspect]
     Indication: ANXIETY
     Dosage: 30 MG; PO: 15 MG;PO
     Route: 048
     Dates: end: 20090626
  2. MIRTAZAPINE [Suspect]
     Indication: DEPRESSION
     Dosage: 30 MG; PO: 15 MG;PO
     Route: 048
     Dates: end: 20090626
  3. MIRTAZAPINE [Suspect]
     Indication: ANXIETY
     Dosage: 30 MG; PO: 15 MG;PO
     Route: 048
     Dates: start: 20090617
  4. MIRTAZAPINE [Suspect]
     Indication: DEPRESSION
     Dosage: 30 MG; PO: 15 MG;PO
     Route: 048
     Dates: start: 20090617
  5. AMOXICILLIN [Concomitant]
  6. CITALOPRAM HYDROBROMIDE [Concomitant]
  7. CODEINE PHOSPHATE [Concomitant]
  8. DIAZEPAM [Concomitant]
  9. FLUCONAZOLE [Concomitant]
  10. METRONIDAZOLE [Concomitant]
  11. RANITIDINE [Concomitant]
  12. LISINOPRIL [Concomitant]

REACTIONS (6)
  - DISORIENTATION [None]
  - DYSPHAGIA [None]
  - HYPOAESTHESIA [None]
  - HYPOKINESIA [None]
  - JOINT SWELLING [None]
  - OEDEMA PERIPHERAL [None]
